FAERS Safety Report 21978591 (Version 2)
Quarter: 2023Q1

REPORT INFORMATION
  Report Type: Report from Study
  Country: US (occurrence: US)
  Receive Date: 20230210
  Receipt Date: 20230303
  Transmission Date: 20230417
  Serious: Yes (Other)
  Sender: FDA-Public Use
  Company Number: US-BEH-2022147860

PATIENT
  Age: 76 Year
  Sex: Female
  Weight: 61.678 kg

DRUGS (4)
  1. HIZENTRA [Suspect]
     Active Substance: HUMAN IMMUNOGLOBULIN G
     Indication: Primary immunodeficiency syndrome
     Dosage: 8 GRAM, QW
     Route: 058
     Dates: start: 20220301
  2. HIZENTRA [Suspect]
     Active Substance: HUMAN IMMUNOGLOBULIN G
     Indication: Immunodeficiency common variable
     Dosage: UNK
     Route: 058
     Dates: start: 20220905
  3. HIZENTRA [Suspect]
     Active Substance: HUMAN IMMUNOGLOBULIN G
     Dosage: 8 GRAM, QW
     Route: 058
     Dates: start: 202204
  4. HIZENTRA [Suspect]
     Active Substance: HUMAN IMMUNOGLOBULIN G
     Dosage: 8 GRAM, QW
     Route: 058
     Dates: start: 202203

REACTIONS (28)
  - Cough [Recovering/Resolving]
  - Feeling abnormal [Recovering/Resolving]
  - Blood immunoglobulin G increased [Recovering/Resolving]
  - Energy increased [Recovering/Resolving]
  - COVID-19 [Unknown]
  - COVID-19 [Unknown]
  - Viral infection [Unknown]
  - Injection site erythema [Recovered/Resolved]
  - Injection site swelling [Recovered/Resolved]
  - Injection site reaction [Unknown]
  - Influenza [Unknown]
  - Pyrexia [Unknown]
  - Asthenia [Unknown]
  - Anal incontinence [Unknown]
  - Urinary incontinence [Unknown]
  - Diarrhoea [Unknown]
  - Fatigue [Unknown]
  - Pyrexia [Unknown]
  - Infusion site swelling [Unknown]
  - Infusion site erythema [Unknown]
  - Abdominal distension [Recovered/Resolved]
  - Sinusitis [Unknown]
  - Cough [Unknown]
  - Weight decreased [Unknown]
  - Pneumonia [Recovering/Resolving]
  - Abdominal pain [Not Recovered/Not Resolved]
  - Malaise [Unknown]
  - Inappropriate schedule of product administration [Unknown]

NARRATIVE: CASE EVENT DATE: 20220901
